FAERS Safety Report 8602822 (Version 2)
Quarter: 2012Q4

REPORT INFORMATION
  Report Type: 
  Country: DZ (occurrence: DZ)
  Receive Date: 20120607
  Receipt Date: 20121217
  Transmission Date: 20130627
  Serious: Yes (Other)
  Sender: FDA-Public Use
  Company Number: DZ-ROCHE-1072551

PATIENT
  Age: 15 Year
  Sex: Male

DRUGS (2)
  1. ACTEMRA [Suspect]
     Indication: JUVENILE ARTHRITIS
     Route: 065
     Dates: start: 2012
  2. ACTEMRA [Suspect]
     Indication: OFF LABEL USE
     Dosage: third infusion
     Route: 065
     Dates: start: 20120527, end: 20120527

REACTIONS (2)
  - Arrhythmia [Unknown]
  - Bradycardia [Recovered/Resolved]
